FAERS Safety Report 8594859-4 (Version None)
Quarter: 2012Q3

REPORT INFORMATION
  Report Type: 
  Country: None (occurrence: None)
  Receive Date: 20120815
  Receipt Date: 20120806
  Transmission Date: 20120928
  Serious: Yes (Hospitalization)
  Sender: FDA-Public Use
  Company Number: US-CELGENEUS-163-21880-12062899

PATIENT
  Sex: Male

DRUGS (24)
  1. REVLIMID [Suspect]
     Route: 048
     Dates: start: 20110601, end: 20111001
  2. REVLIMID [Suspect]
     Dosage: UNKNOWN
     Route: 048
     Dates: start: 20120608, end: 20120613
  3. PLATELETS [Concomitant]
     Route: 065
     Dates: start: 20120101
  4. PRAVASTATIN [Concomitant]
     Dosage: 20 MILLIGRAM
     Route: 048
  5. PAXIL [Concomitant]
     Dosage: 20 MILLIGRAM
     Route: 048
  6. COMPAZINE [Concomitant]
     Route: 048
  7. METOPROLOL SUCCINATE EXTENDED RELEASE [Concomitant]
     Indication: HEART RATE
     Dosage: 25 MILLIGRAM
     Route: 048
     Dates: start: 20120601
  8. TYLENOL [Concomitant]
     Dosage: 650 MILLIGRAM
     Route: 048
  9. AZACITIDINE [Suspect]
     Dosage: 164 MILLIGRAM
     Route: 041
     Dates: start: 20120608, end: 20120615
  10. MS CONTIN [Concomitant]
     Dosage: 200 MILLIGRAM
     Route: 048
  11. ZOFRAN [Concomitant]
     Dosage: 8 MILLIGRAM
     Route: 048
  12. GLUCOPHAGE [Concomitant]
     Dosage: 500 MILLIGRAM
     Route: 048
  13. SYNTHROID [Concomitant]
     Dosage: 50 MILLIGRAM
     Route: 048
  14. NORCO [Concomitant]
     Dosage: 1 TABLET
     Route: 048
  15. ACETAMINOPHEN [Concomitant]
     Dosage: 1 TABLET
     Route: 048
  16. RED BLOOD CELLS [Concomitant]
     Dosage: 2 UNITS
     Route: 065
     Dates: start: 20120101
  17. SENNA [Concomitant]
     Route: 065
  18. BENADRYL [Concomitant]
     Dosage: 12.5 MILLIGRAM
     Route: 050
  19. LEVOTHYROXINE SODIUM [Concomitant]
     Dosage: 50 MICROGRAM
     Route: 048
  20. MORPHINE SULFATE [Concomitant]
     Indication: PAIN
     Dosage: 200 MILLIGRAM
     Route: 065
  21. ENALAPRIL MALEATE [Concomitant]
     Dosage: 20 MILLIGRAM
     Route: 048
  22. VICODIN [Concomitant]
     Indication: PAIN
     Route: 065
  23. DOC-Q-LAX [Concomitant]
     Dosage: 3 TABLET
     Route: 048
  24. REVLIMID [Suspect]
     Dosage: 50 MILLIGRAM
     Route: 048
     Dates: start: 20120616, end: 20120706

REACTIONS (1)
  - ATRIAL FLUTTER [None]
